FAERS Safety Report 5816603-3 (Version None)
Quarter: 2008Q3

REPORT INFORMATION
  Report Type: 
  Country: None (occurrence: None)
  Receive Date: 20080717
  Receipt Date: 20080411
  Transmission Date: 20090109
  Serious: Yes (Other)
  Sender: FDA-Public Use
  Company Number: 2008SP006291

PATIENT

DRUGS (1)
  1. INTEGRILIN [Suspect]
     Indication: PERCUTANEOUS CORONARY INTERVENTION

REACTIONS (1)
  - HAEMOPTYSIS [None]
